FAERS Safety Report 9557711 (Version 1)
Quarter: 2013Q3

REPORT INFORMATION
  Report Type: Spontaneous
  Country: US (occurrence: None)
  Receive Date: 20130724
  Receipt Date: 20130724
  Transmission Date: 20140515
  Serious: Yes (Other)
  Sender: FDA-Public Use
  Company Number: PHEH2012US016183

PATIENT
  Age: 40 Year
  Sex: Female
  Weight: 69.4 kg

DRUGS (3)
  1. GLEEVEC (IMATINIB) [Suspect]
     Indication: GASTRIC CANCER
     Route: 048
     Dates: start: 201204
  2. GLEEVEC (IMATINIB) [Suspect]
     Indication: GASTROINTESTINAL STROMAL TUMOUR
     Route: 048
     Dates: start: 201204
  3. IRON [Concomitant]

REACTIONS (4)
  - Neoplasm progression [None]
  - Metastases to liver [None]
  - Malignant neoplasm progression [None]
  - Abdominal pain [None]
